FAERS Safety Report 11811807 (Version 2)
Quarter: 2016Q1

REPORT INFORMATION
  Report Type: Spontaneous
  Country: DE (occurrence: DE)
  Receive Date: 20151208
  Receipt Date: 20160121
  Transmission Date: 20160525
  Serious: Yes (Other)
  Sender: FDA-Public Use
  Company Number: GXKR2015DE005336

PATIENT
  Age: 45 Year
  Sex: Female

DRUGS (2)
  1. RISPERIDON ? 1 A PHARMA [Suspect]
     Active Substance: RISPERIDONE
     Indication: EPILEPSY
     Dosage: 2.5 MG, QD
     Route: 048
     Dates: start: 20151104, end: 20151207
  2. RISPERIDON ? 1 A PHARMA [Suspect]
     Active Substance: RISPERIDONE
     Indication: MENTAL DISORDER DUE TO A GENERAL MEDICAL CONDITION

REACTIONS (3)
  - Benign breast neoplasm [Unknown]
  - Hyperprolactinaemia [Unknown]
  - Mastitis [Recovered/Resolved]

NARRATIVE: CASE EVENT DATE: 20151110
